FAERS Safety Report 9492866 (Version 3)
Quarter: 2013Q3

REPORT INFORMATION
  Report Type: Spontaneous
  Country: US (occurrence: US)
  Receive Date: 20130901
  Receipt Date: 20130911
  Transmission Date: 20140515
  Serious: Yes (Death)
  Sender: FDA-Public Use
  Company Number: US-009507513-1308USA014722

PATIENT
  Age: 56 Year
  Sex: Male

DRUGS (8)
  1. TEMODAR [Suspect]
     Indication: GLIOBLASTOMA MULTIFORME
     Dosage: 250 MG, Q5D
     Route: 048
     Dates: start: 20130311
  2. AVASTIN (ATORVASTATIN CALCIUM) [Concomitant]
     Dosage: UNK
  3. OXALIPLATIN [Concomitant]
     Dosage: UNK
  4. XELODA [Concomitant]
     Dosage: UNK
  5. HYDROCODONE [Concomitant]
     Dosage: UNK
  6. ATIVAN [Concomitant]
     Dosage: UNK
  7. ZOFRAN [Concomitant]
  8. COUMADIN [Concomitant]
     Dosage: UNK

REACTIONS (1)
  - Disease progression [Fatal]
